FAERS Safety Report 6156465-0 (Version None)
Quarter: 2009Q2

REPORT INFORMATION
  Report Type: 
  Country: None (occurrence: None)
  Receive Date: 20090416
  Receipt Date: 20070725
  Transmission Date: 20091009
  Serious: Yes (Other)
  Sender: FDA-Public Use
  Company Number: US-ASTRAZENECA-2007UW09598

PATIENT
  Age: 51 Year
  Sex: Male
  Weight: 116.1 kg

DRUGS (27)
  1. SEROQUEL [Suspect]
     Indication: BIPOLAR DISORDER
     Route: 048
     Dates: start: 20040401, end: 20050601
  2. SEROQUEL [Suspect]
     Dosage: 100-400 MG
     Route: 048
     Dates: start: 20040401
  3. CATAPRES [Concomitant]
  4. CLONAZEPAM [Concomitant]
  5. PROPOXYPHENE HCL CAP [Concomitant]
  6. CYANOCOBALAMIN [Concomitant]
  7. GLYBURIDE [Concomitant]
  8. METHYLPREDNISOLONE 4MG TAB [Concomitant]
  9. ALLOPURINOL [Concomitant]
  10. HYDROCODONE BITARTRATE [Concomitant]
  11. VERELAN [Concomitant]
  12. FOLIC ACID [Concomitant]
  13. HYDROXYZINE [Concomitant]
  14. AVODART [Concomitant]
  15. SYMLIN [Concomitant]
  16. PAMOATE [Concomitant]
  17. PROGRAF [Concomitant]
  18. REQUIP [Concomitant]
  19. LYRICA [Concomitant]
  20. ACTONEL [Concomitant]
  21. LANTUS [Concomitant]
  22. ZETIA [Concomitant]
  23. NEXIUM [Concomitant]
  24. LEXAPRO [Concomitant]
  25. FLOMAX [Concomitant]
  26. PROMETHAZINE [Concomitant]
  27. GABAPENTIN [Concomitant]

REACTIONS (10)
  - ARTHRALGIA [None]
  - HYPOAESTHESIA [None]
  - HYPOAESTHESIA FACIAL [None]
  - HYPOTENSION [None]
  - ISCHAEMIA [None]
  - OSTEOPOROSIS [None]
  - PAIN IN EXTREMITY [None]
  - PANCREATITIS ACUTE [None]
  - PELVIC PAIN [None]
  - TYPE 1 DIABETES MELLITUS [None]
